FAERS Safety Report 12924484 (Version 1)
Quarter: 2016Q4

REPORT INFORMATION
  Report Type: Report from Study
  Country: US (occurrence: US)
  Receive Date: 20161109
  Receipt Date: 20161109
  Transmission Date: 20170207
  Serious: Yes (Disabling, Other)
  Sender: FDA-Public Use
  Company Number: US-ROCHE-1852018

PATIENT
  Sex: Male

DRUGS (2)
  1. CELLCEPT [Suspect]
     Active Substance: MYCOPHENOLATE MOFETIL\MYCOPHENOLATE MOFETIL HYDROCHLORIDE
     Indication: NEUROMYELITIS OPTICA SPECTRUM DISORDER
     Route: 048
     Dates: start: 201409
  2. BACLOFEN. [Concomitant]
     Active Substance: BACLOFEN
     Indication: MUSCLE SPASMS

REACTIONS (4)
  - Urinary tract infection [Not Recovered/Not Resolved]
  - Vertebral lesion [Unknown]
  - Off label use [Unknown]
  - Neuromyelitis optica spectrum disorder [Not Recovered/Not Resolved]

NARRATIVE: CASE EVENT DATE: 201508
